FAERS Safety Report 13163813 (Version 2)
Quarter: 2017Q1

REPORT INFORMATION
  Report Type: Spontaneous
  Country: SE (occurrence: SE)
  Receive Date: 20170130
  Receipt Date: 20170207
  Transmission Date: 20170428
  Serious: Yes (Death, Other)
  Sender: FDA-Public Use
  Company Number: SE-GILEAD-2017-0255543

PATIENT
  Age: 45 Year
  Sex: Male

DRUGS (6)
  1. MODERIBA [Suspect]
     Active Substance: RIBAVIRIN
     Indication: HEPATITIS C
     Dosage: UNK UNKNOWN, UNK
     Route: 048
     Dates: start: 20160415, end: 20160929
  2. HARVONI [Suspect]
     Active Substance: LEDIPASVIR\SOFOSBUVIR
     Indication: HEPATITIS C
     Dosage: 400/90 MG 1X1
     Route: 048
     Dates: start: 20160415, end: 20160929
  3. SOVALDI [Suspect]
     Active Substance: SOFOSBUVIR
     Indication: HEPATITIS C
     Dosage: 400 MG, QD
     Route: 048
     Dates: start: 20150108, end: 20150428
  4. OLYSIO [Suspect]
     Active Substance: SIMEPREVIR
     Indication: HEPATITIS C
     Route: 048
     Dates: start: 20150108, end: 20150428
  5. INTERFERON [Concomitant]
     Active Substance: INTERFERON
     Indication: HEPATITIS C
     Dosage: UNK UNKNOWN, UNK
     Route: 065
     Dates: start: 1999
  6. INTERFERON [Concomitant]
     Active Substance: INTERFERON
     Dosage: UNK UNKNOWN, UNK
     Route: 065
     Dates: start: 2010

REACTIONS (3)
  - Hepatitis C [Unknown]
  - Malignant neoplasm progression [Fatal]
  - Drug ineffective [Unknown]
